FAERS Safety Report 20327134 (Version 1)
Quarter: 2022Q1

REPORT INFORMATION
  Report Type: Spontaneous
  Country: US (occurrence: US)
  Receive Date: 20220112
  Receipt Date: 20220112
  Transmission Date: 20220423
  Serious: Yes (Hospitalization, Other)
  Sender: FDA-Public Use
  Company Number: US-GLAXOSMITHKLINE-US2022001872

PATIENT
  Age: 72 Year
  Sex: Male

DRUGS (1)
  1. ANORO ELLIPTA [Suspect]
     Active Substance: UMECLIDINIUM BROMIDE\VILANTEROL TRIFENATATE
     Indication: Product used for unknown indication
     Dosage: UNK, 62.5MCG/25MCG
     Dates: start: 20211101, end: 20211226

REACTIONS (6)
  - Lung neoplasm malignant [Not Recovered/Not Resolved]
  - Central venous catheterisation [Unknown]
  - Lung perforation [Unknown]
  - Chest tube insertion [Unknown]
  - Chest tube removal [Unknown]
  - Asthenia [Recovering/Resolving]

NARRATIVE: CASE EVENT DATE: 20211125
